FAERS Safety Report 23406639 (Version 2)
Quarter: 2024Q1

REPORT INFORMATION
  Report Type: Spontaneous
  Country: US (occurrence: US)
  Receive Date: 20240116
  Receipt Date: 20240301
  Transmission Date: 20240409
  Serious: Yes (Other)
  Sender: FDA-Public Use
  Company Number: US-FreseniusKabi-FK202400683

PATIENT
  Age: 20 Year
  Sex: Female
  Weight: 71.2 kg

DRUGS (12)
  1. CISPLATIN [Suspect]
     Active Substance: CISPLATIN
     Indication: Ovarian cancer
     Dosage: FORM OF ADMIN: INJECTION?20 MG/M2 DAYS 2-5 OF FIRST CYCLE
     Route: 042
     Dates: start: 20231107, end: 20231110
  2. CISPLATIN [Suspect]
     Active Substance: CISPLATIN
     Indication: Ovarian cancer
     Dosage: FORM OF ADMIN: INJECTION ?CYCLE 2?20 MG/M2 DAYS 2-5OF FIRST CYCLE
     Route: 042
     Dates: end: 20231201
  3. CISPLATIN [Suspect]
     Active Substance: CISPLATIN
     Dosage: FORM OF ADMIN: INJECTION?CYCLE 3?20 MG/M2 DAYS 1-5; (CYCLE2 AND 3)
     Route: 042
     Dates: start: 20231218, end: 20231222
  4. CISPLATIN [Suspect]
     Active Substance: CISPLATIN
     Indication: Ovarian cancer
     Dosage: FORM OF ADMIN: INJECTION?20 MG/M2 DAY 1 OF FIRST CYCLE
     Route: 042
     Dates: start: 20231106, end: 20231106
  5. DEXAMETHASONE [Concomitant]
     Active Substance: DEXAMETHASONE
     Indication: Product used for unknown indication
     Dosage: 8 MG PO DAYS 2-5 OF TREATMENT
     Route: 048
  6. OLANZAPINE [Concomitant]
     Active Substance: OLANZAPINE
     Indication: Product used for unknown indication
     Dosage: 5MG
     Route: 048
  7. ONDANSETRON [Concomitant]
     Active Substance: ONDANSETRON
     Indication: Product used for unknown indication
     Dosage: 8MG
     Route: 048
  8. ALOXI [Concomitant]
     Active Substance: PALONOSETRON HYDROCHLORIDE
     Indication: Product used for unknown indication
     Route: 065
  9. FOSAPREPITANT [Concomitant]
     Active Substance: FOSAPREPITANT
     Indication: Product used for unknown indication
     Dosage: 150MG
     Route: 042
  10. BLEOMYCIN [Concomitant]
     Active Substance: BLEOMYCIN SULFATE
     Indication: Product used for unknown indication
     Dosage: 30 UNITS
     Route: 042
  11. ETOPOSIDE [Concomitant]
     Active Substance: ETOPOSIDE
     Indication: Product used for unknown indication
     Dosage: 180MG
     Route: 042
  12. MANNITOL [Concomitant]
     Active Substance: MANNITOL
     Indication: Product used for unknown indication
     Dosage: 25MG
     Route: 042

REACTIONS (1)
  - Tinnitus [Unknown]

NARRATIVE: CASE EVENT DATE: 20231115
